FAERS Safety Report 12994138 (Version 2)
Quarter: 2016Q4

REPORT INFORMATION
  Report Type: Spontaneous
  Country: US (occurrence: US)
  Receive Date: 20161202
  Receipt Date: 20161207
  Transmission Date: 20170207
  Serious: No
  Sender: FDA-Public Use
  Company Number: US-PFIZER INC-2016550268

PATIENT
  Age: 71 Year
  Sex: Female
  Weight: 72 kg

DRUGS (1)
  1. IBRANCE [Suspect]
     Active Substance: PALBOCICLIB
     Indication: BREAST CANCER METASTATIC
     Dosage: 100 MG, CYCLIC, (DAYS 1-21 Q28 DAYS)
     Route: 048
     Dates: start: 20161109

REACTIONS (3)
  - Vitamin D decreased [Unknown]
  - Arthritis [Unknown]
  - Arthralgia [Unknown]
